FAERS Safety Report 25801909 (Version 1)
Quarter: 2025Q3

REPORT INFORMATION
  Report Type: Spontaneous
  Country: GB (occurrence: GB)
  Receive Date: 20250915
  Receipt Date: 20250915
  Transmission Date: 20251021
  Serious: Yes (Hospitalization, Other)
  Sender: CHEPLAPHARM
  Company Number: GB-MYLANLABS-2025M1015342

PATIENT
  Sex: Female
  Weight: 114 kg

DRUGS (15)
  1. OLANZAPINE [Suspect]
     Active Substance: OLANZAPINE
     Indication: Product used for unknown indication
     Route: 048
  2. CLOZARIL [Suspect]
     Active Substance: CLOZAPINE
     Indication: Malaise
     Dosage: UNK, BID (100MG IN THE MORNING 225MG AT NIGHT)?DAILY DOSE: 325 MILLIGRAM
     Route: 048
     Dates: start: 20180919
  3. CLOZARIL [Suspect]
     Active Substance: CLOZAPINE
     Indication: Schizophrenia
     Dosage: UNK, BID (100MG IN THE MORNING 225MG AT NIGHT)?DAILY DOSE: 325 MILLIGRAM
     Route: 048
     Dates: start: 20180919
  4. CLOZARIL [Suspect]
     Active Substance: CLOZAPINE
     Indication: Malaise
     Dosage: 100 MG IN THE MORNING AND 200 MG AT NIGHT.?DAILY DOSE: 300 MILLIGRAM
     Route: 048
     Dates: start: 20250108, end: 20250211
  5. CLOZARIL [Suspect]
     Active Substance: CLOZAPINE
     Indication: Schizophrenia
     Dosage: 100 MG IN THE MORNING AND 200 MG AT NIGHT.?DAILY DOSE: 300 MILLIGRAM
     Route: 048
     Dates: start: 20250108, end: 20250211
  6. CLOZARIL [Suspect]
     Active Substance: CLOZAPINE
     Indication: Malaise
     Route: 048
     Dates: start: 20250403
  7. CLOZARIL [Suspect]
     Active Substance: CLOZAPINE
     Indication: Schizophrenia
     Route: 048
     Dates: start: 20250403
  8. ZUCLOPENTHIXOL [Suspect]
     Active Substance: ZUCLOPENTHIXOL
     Indication: Product used for unknown indication
     Route: 048
  9. ARIPIPRAZOLE [Concomitant]
     Active Substance: ARIPIPRAZOLE
     Dosage: 30 MILLIGRAM, AM (MORNING)?DAILY DOSE: 30 MILLIGRAM
     Dates: end: 202502
  10. VENLAFAXINE [Concomitant]
     Active Substance: VENLAFAXINE HYDROCHLORIDE
     Dates: end: 202502
  11. LEVOTHYROXINE [Concomitant]
     Active Substance: LEVOTHYROXINE
     Dosage: 50 MICROGRAM, QD?DAILY DOSE: 50 MILLIGRAM
  12. FOLIC ACID [Concomitant]
     Active Substance: FOLIC ACID
     Dosage: 5 MILLIGRAM, QD?DAILY DOSE: 5 MILLIGRAM
  13. LITHIUM [Concomitant]
     Active Substance: LITHIUM
     Dates: end: 202502
  14. ATORVASTATIN [Concomitant]
     Active Substance: ATORVASTATIN
     Dosage: 20 MILLIGRAM, QD?DAILY DOSE: 20 MILLIGRAM
  15. LISINOPRIL [Concomitant]
     Active Substance: LISINOPRIL

REACTIONS (5)
  - Condition aggravated [Unknown]
  - Disease recurrence [Unknown]
  - Lower respiratory tract infection [Unknown]
  - Catatonia [Unknown]
  - Urinary tract infection [Unknown]

NARRATIVE: CASE EVENT DATE: 20250101
